FAERS Safety Report 7776575-1 (Version None)
Quarter: 2011Q3

REPORT INFORMATION
  Report Type: 
  Country: None (occurrence: None)
  Receive Date: 20110926
  Receipt Date: 20110916
  Transmission Date: 20111222
  Serious: Yes (Other)
  Sender: FDA-Public Use
  Company Number: CN-JNJFOC-20110907084

PATIENT
  Age: 30 Year
  Sex: Male

DRUGS (2)
  1. RISPERDAL [Suspect]
     Indication: MENTAL DISORDER
     Route: 048
     Dates: start: 20110914, end: 20110916
  2. RISPERDAL [Suspect]
     Route: 065

REACTIONS (4)
  - DELIRIUM [None]
  - RESTLESSNESS [None]
  - INCORRECT DOSE ADMINISTERED [None]
  - OFF LABEL USE [None]
